FAERS Safety Report 16696802 (Version 5)
Quarter: 2021Q4

REPORT INFORMATION
  Report Type: Report from Study
  Country: US (occurrence: US)
  Receive Date: 20190813
  Receipt Date: 20211221
  Transmission Date: 20220303
  Serious: Yes (Other)
  Sender: FDA-Public Use
  Company Number: PHEH2019US032631

PATIENT
  Sex: Female

DRUGS (2)
  1. GLEEVEC [Suspect]
     Active Substance: IMATINIB MESYLATE
     Indication: Gastric cancer
     Dosage: UNK
     Route: 065
  2. GLEEVEC [Suspect]
     Active Substance: IMATINIB MESYLATE
     Indication: Hepatic cancer

REACTIONS (6)
  - Hip fracture [Unknown]
  - Gastric cancer [Unknown]
  - Hepatic cancer [Unknown]
  - Malignant neoplasm progression [Unknown]
  - Cognitive disorder [Unknown]
  - Product use in unapproved indication [Unknown]
